FAERS Safety Report 14918534 (Version 2)
Quarter: 2018Q2

REPORT INFORMATION
  Report Type: Report from Study
  Country: None (occurrence: US)
  Receive Date: 20180521
  Receipt Date: 20180613
  Transmission Date: 20180711
  Serious: Yes (Other)
  Sender: FDA-Public Use
  Company Number: US-ABBVIE-18K-163-2360270-00

PATIENT
  Age: 84 Year
  Sex: Female
  Weight: 55.39 kg

DRUGS (9)
  1. VENTOLIN [Concomitant]
     Active Substance: ALBUTEROL SULFATE
     Indication: EMPHYSEMA
  2. HUMIRA [Suspect]
     Active Substance: ADALIMUMAB
     Indication: RHEUMATOID ARTHRITIS
     Route: 058
     Dates: start: 2015
  3. CALCIUM [Concomitant]
     Active Substance: CALCIUM
     Indication: VITAMIN SUPPLEMENTATION
  4. IRON [Concomitant]
     Active Substance: IRON
     Indication: MINERAL SUPPLEMENTATION
  5. PANTOPRAZOLE [Concomitant]
     Active Substance: PANTOPRAZOLE
     Indication: GASTROOESOPHAGEAL REFLUX DISEASE
  6. OCUVITE [Concomitant]
     Active Substance: VITAMINS
     Indication: MACULAR DEGENERATION
  7. METHOTREXATE. [Concomitant]
     Active Substance: METHOTREXATE
     Indication: RHEUMATOID ARTHRITIS
  8. ONDANSETRON [Concomitant]
     Active Substance: ONDANSETRON
     Indication: GASTROOESOPHAGEAL REFLUX DISEASE
  9. FOLIC ACID. [Concomitant]
     Active Substance: FOLIC ACID
     Indication: VITAMIN SUPPLEMENTATION

REACTIONS (6)
  - Dyspnoea [Recovered/Resolved]
  - Muscle spasms [Not Recovered/Not Resolved]
  - Pain in extremity [Not Recovered/Not Resolved]
  - Thyroid mass [Not Recovered/Not Resolved]
  - Loss of consciousness [Recovered/Resolved]
  - Thyroid cyst [Not Recovered/Not Resolved]

NARRATIVE: CASE EVENT DATE: 201803
